FAERS Safety Report 16865285 (Version 1)
Quarter: 2019Q3

REPORT INFORMATION
  Report Type: Spontaneous
  Country: DE (occurrence: DE)
  Receive Date: 20190930
  Receipt Date: 20190930
  Transmission Date: 20191005
  Serious: Yes (Death, Life-Threatening, Hospitalization)
  Sender: FDA-Public Use
  Company Number: DE-SA-2018SA144873

PATIENT
  Age: 50 Year
  Sex: Female
  Weight: 69 kg

DRUGS (21)
  1. TRASTUZUMAB. [Suspect]
     Active Substance: TRASTUZUMAB
     Dosage: 6 MG/KG, Q3W
     Route: 042
     Dates: start: 20161108, end: 20161108
  2. KEPPRA [Concomitant]
     Active Substance: LEVETIRACETAM
     Dosage: 1500 MG, QD
     Route: 048
     Dates: start: 2006, end: 20170106
  3. ATORVASTATIN [Concomitant]
     Active Substance: ATORVASTATIN
     Dosage: 20 MG, QD
     Route: 048
  4. LETROZOLE. [Suspect]
     Active Substance: LETROZOLE
     Dosage: 2.5 MG
     Route: 065
  5. ZOLEDRONIC ACID [Suspect]
     Active Substance: ZOLEDRONIC ACID
     Indication: PRODUCT USED FOR UNKNOWN INDICATION
     Dosage: 4 MG, Q4W
     Route: 065
     Dates: start: 20170302, end: 20170302
  6. PERTUZUMAB. [Suspect]
     Active Substance: PERTUZUMAB
     Indication: HER-2 POSITIVE BREAST CANCER
     Dosage: 420 MG, Q3W
     Route: 042
     Dates: start: 20170705, end: 20170705
  7. TRASTUZUMAB. [Suspect]
     Active Substance: TRASTUZUMAB
     Indication: HER-2 POSITIVE BREAST CANCER
     Dosage: 6 MG/KG, Q3W
     Route: 042
     Dates: start: 20140108, end: 20140108
  8. TRASTUZUMAB. [Suspect]
     Active Substance: TRASTUZUMAB
     Dosage: 6 MG/KG, Q3W
     Route: 042
     Dates: start: 20170705, end: 20170705
  9. TRASTUZUMAB. [Suspect]
     Active Substance: TRASTUZUMAB
     Dosage: 6 MG/KG, Q3W
     Route: 042
     Dates: start: 20170827, end: 20170827
  10. KEPPRA [Concomitant]
     Active Substance: LEVETIRACETAM
     Indication: EPILEPSY
     Dosage: 1500 MG, QD
     Route: 048
     Dates: start: 20060630, end: 20170827
  11. CLOPIDOGREL [Concomitant]
     Active Substance: CLOPIDOGREL BISULFATE
     Dosage: UNK
     Route: 065
     Dates: start: 20170621, end: 20170827
  12. LETROZOLE. [Suspect]
     Active Substance: LETROZOLE
     Indication: HER-2 POSITIVE BREAST CANCER
     Dosage: 2.5 MG
     Route: 065
     Dates: start: 201405, end: 20170827
  13. ZOLEDRONIC ACID [Suspect]
     Active Substance: ZOLEDRONIC ACID
     Dosage: 4 MG, Q4W
     Route: 065
     Dates: start: 20170719, end: 20170719
  14. PERTUZUMAB. [Suspect]
     Active Substance: PERTUZUMAB
     Indication: BREAST CANCER
     Dosage: 420 MG, Q3W
     Route: 042
     Dates: start: 20161108, end: 20161108
  15. PERTUZUMAB. [Suspect]
     Active Substance: PERTUZUMAB
     Dosage: 420 MG, Q3W
     Route: 042
     Dates: start: 20170827, end: 20170827
  16. ATORVASTATIN [Concomitant]
     Active Substance: ATORVASTATIN
     Indication: HYPERCHOLESTEROLAEMIA
     Dosage: 20 MG, QD
     Route: 048
  17. KEPPRA [Concomitant]
     Active Substance: LEVETIRACETAM
     Dosage: 1500 UNKLAST DOSE ON 06/JAN/2017, 1 PRO TAG / PER DAY.
     Route: 048
     Dates: start: 20060630, end: 20170827
  18. ASPIRINE [Concomitant]
     Active Substance: ASPIRIN
     Indication: CEREBROVASCULAR ACCIDENT
     Dosage: 100 MG,LAST DOSE ON 06/JAN/2017
     Route: 065
  19. ZOLEDRONIC ACID [Suspect]
     Active Substance: ZOLEDRONIC ACID
     Dosage: 4 MG, Q4W
     Route: 065
     Dates: start: 20170827, end: 20170827
  20. PANTOPRAZOLE [Concomitant]
     Active Substance: PANTOPRAZOLE
     Dosage: UNK,LAST DOSE ON 06/JAN/2017
     Route: 065
     Dates: start: 20170621, end: 20170827
  21. DOCETAXEL. [Suspect]
     Active Substance: DOCETAXEL
     Indication: HER-2 POSITIVE BREAST CANCER
     Dosage: UNK UNK, Q3W 60-75 MG/M2
     Route: 042
     Dates: start: 20161108, end: 20161108

REACTIONS (9)
  - Dysgeusia [Recovered/Resolved]
  - Neutropenia [Recovered/Resolved]
  - Diarrhoea [Not Recovered/Not Resolved]
  - Mucosal inflammation [Recovered/Resolved]
  - Epistaxis [Recovered/Resolved]
  - Febrile neutropenia [Not Recovered/Not Resolved]
  - Cough [Not Recovered/Not Resolved]
  - Dysuria [Not Recovered/Not Resolved]
  - Vertigo [Recovered/Resolved]

NARRATIVE: CASE EVENT DATE: 20161115
